FAERS Safety Report 9430695 (Version 1)
Quarter: 2013Q3

REPORT INFORMATION
  Report Type: Spontaneous
  Country: US (occurrence: None)
  Receive Date: 20130726
  Receipt Date: 20130726
  Transmission Date: 20140515
  Serious: Yes (Death, Hospitalization)
  Sender: FDA-Public Use
  Company Number: ADR-2013-01233

PATIENT
  Age: 76 Year
  Sex: Male

DRUGS (5)
  1. BACLOFEN INTRATHECAL [Suspect]
     Indication: CANCER PAIN
  2. DILAUDID (HYDROMORPHONE) [Concomitant]
  3. DROPERIDOL [Concomitant]
  4. BUPIVACAINE [Concomitant]
  5. CLONIDINE [Concomitant]

REACTIONS (1)
  - Renal cell carcinoma [None]
